FAERS Safety Report 5927373-2 (Version None)
Quarter: 2008Q4

REPORT INFORMATION
  Report Type: 
  Country: None (occurrence: None)
  Receive Date: 20081022
  Receipt Date: 20081014
  Transmission Date: 20090506
  Serious: Yes (Other)
  Sender: FDA-Public Use
  Company Number: CA-JNJCH-2008051400

PATIENT
  Sex: Female

DRUGS (1)
  1. BENADRYL [Suspect]
     Indication: HYPERSENSITIVITY
     Route: 048
     Dates: start: 20081005, end: 20081007

REACTIONS (3)
  - FLUSHING [None]
  - HYPERSENSITIVITY [None]
  - TREMOR [None]
